FAERS Safety Report 4618535-5 (Version None)
Quarter: 2005Q1

REPORT INFORMATION
  Report Type: 
  Country: None (occurrence: None)
  Receive Date: 20050324
  Receipt Date: 20050314
  Transmission Date: 20050727
  Serious: Yes (Hospitalization, Other)
  Sender: FDA-Public Use
  Company Number: DEU-2005-0001322

PATIENT
  Age: 37 Year
  Sex: Female

DRUGS (1)
  1. OXYCODONE HCL [Suspect]
     Indication: PAIN
     Dosage: 680 MG, DAILY, ORAL
     Route: 048

REACTIONS (4)
  - CEREBRAL VENTRICLE DILATATION [None]
  - CSF PRESSURE INCREASED [None]
  - SLEEP ATTACKS [None]
  - TREATMENT NONCOMPLIANCE [None]
